FAERS Safety Report 20433955 (Version 1)
Quarter: 2022Q1

REPORT INFORMATION
  Report Type: Report from Study
  Country: US (occurrence: US)
  Receive Date: 20220205
  Receipt Date: 20220205
  Transmission Date: 20220423
  Serious: Yes (Death, Other)
  Sender: FDA-Public Use
  Company Number: US-MYLANLABS-2022M1009958

PATIENT
  Age: 51 Year
  Sex: Male

DRUGS (1)
  1. CLOZAPINE [Suspect]
     Active Substance: CLOZAPINE
     Indication: Product used for unknown indication
     Dosage: 175 MILLIGRAM
     Dates: start: 20170414

REACTIONS (3)
  - Death [Fatal]
  - Neutropenia [Unknown]
  - Lung disorder [Unknown]

NARRATIVE: CASE EVENT DATE: 20220104
